FAERS Safety Report 13783366 (Version 3)
Quarter: 2019Q2

REPORT INFORMATION
  Report Type: Spontaneous
  Country: PL (occurrence: PL)
  Receive Date: 20170724
  Receipt Date: 20190429
  Transmission Date: 20190711
  Serious: Yes (Hospitalization, Disabling, Other)
  Sender: FDA-Public Use
  Company Number: PL-ELI_LILLY_AND_COMPANY-PL201707007535

PATIENT
  Age: 68 Year
  Sex: Female

DRUGS (4)
  1. GEMCITABINE HYDROCHLORIDE. [Suspect]
     Active Substance: GEMCITABINE HYDROCHLORIDE
     Indication: DUCTAL ADENOCARCINOMA OF PANCREAS
     Dosage: UNK UNK, UNKNOWN
     Route: 065
     Dates: start: 20121105, end: 20130308
  2. GEMCITABINE HYDROCHLORIDE. [Suspect]
     Active Substance: GEMCITABINE HYDROCHLORIDE
     Dosage: UNK UNK, UNKNOWN
     Route: 065
     Dates: start: 20140923
  3. PACLITAXEL. [Suspect]
     Active Substance: PACLITAXEL
     Dosage: 140 MG, CYCLICAL
     Route: 042
     Dates: start: 20160428, end: 20160715
  4. PACLITAXEL. [Suspect]
     Active Substance: PACLITAXEL
     Indication: DUCTAL ADENOCARCINOMA OF PANCREAS
     Dosage: 188 MG, CYCLICAL
     Route: 042
     Dates: start: 20150217, end: 20160413

REACTIONS (2)
  - Eczema asteatotic [Recovering/Resolving]
  - Scleroderma [Recovering/Resolving]

NARRATIVE: CASE EVENT DATE: 201505
